FAERS Safety Report 26065239 (Version 1)
Quarter: 2025Q4

REPORT INFORMATION
  Report Type: Spontaneous
  Country: EU (occurrence: EU)
  Receive Date: 20251119
  Receipt Date: 20251119
  Transmission Date: 20260118
  Serious: Yes (Other)
  Sender: MYLAN
  Company Number: EU-STADA-01453172

PATIENT
  Age: 32 Year
  Sex: Female

DRUGS (8)
  1. LANSOPRAZOLE [Suspect]
     Active Substance: LANSOPRAZOLE
     Indication: Gastritis
     Dosage: 15 MILLIGRAM, QD (1 CAPSULE IN THE MORNING ON AN EMPTY STOMACH FOR 10 DAYS)
  2. LANSOPRAZOLE [Suspect]
     Active Substance: LANSOPRAZOLE
     Dosage: 15 MILLIGRAM, QD (1 CAPSULE IN THE MORNING ON AN EMPTY STOMACH FOR 10 DAYS)
     Route: 048
  3. LANSOPRAZOLE [Suspect]
     Active Substance: LANSOPRAZOLE
     Dosage: 15 MILLIGRAM, QD (1 CAPSULE IN THE MORNING ON AN EMPTY STOMACH FOR 10 DAYS)
     Route: 048
  4. LANSOPRAZOLE [Suspect]
     Active Substance: LANSOPRAZOLE
     Dosage: 15 MILLIGRAM, QD (1 CAPSULE IN THE MORNING ON AN EMPTY STOMACH FOR 10 DAYS)
  5. RUPAFIN [Concomitant]
     Active Substance: RUPATADINE FUMARATE
     Indication: Hypersensitivity
     Dosage: 1 DOSAGE FORM, QD (1 TABLET IN THE EVENING)
  6. RUPAFIN [Concomitant]
     Active Substance: RUPATADINE FUMARATE
     Dosage: 1 DOSAGE FORM, QD (1 TABLET IN THE EVENING)
     Route: 065
  7. RUPAFIN [Concomitant]
     Active Substance: RUPATADINE FUMARATE
     Dosage: 1 DOSAGE FORM, QD (1 TABLET IN THE EVENING)
     Route: 065
  8. RUPAFIN [Concomitant]
     Active Substance: RUPATADINE FUMARATE
     Dosage: 1 DOSAGE FORM, QD (1 TABLET IN THE EVENING)

REACTIONS (2)
  - Dysentery [Not Recovered/Not Resolved]
  - Abdominal pain [Not Recovered/Not Resolved]
